FAERS Safety Report 14015890 (Version 1)
Quarter: 2017Q3

REPORT INFORMATION
  Report Type: Spontaneous
  Country: US (occurrence: None)
  Receive Date: 20170927
  Receipt Date: 20170927
  Transmission Date: 20171128
  Serious: No
  Sender: FDA-Public Use
  Company Number: None

PATIENT
  Age: 76 Year
  Sex: Female
  Weight: 62.14 kg

DRUGS (8)
  1. TRIAMTERENE AND HYDROCHLOROTHIAZIDE [Concomitant]
     Active Substance: HYDROCHLOROTHIAZIDE\TRIAMTERENE
  2. ASPIRIN. [Concomitant]
     Active Substance: ASPIRIN
  3. MULTIPLE VITAMIN [Concomitant]
     Active Substance: VITAMINS
  4. FISH OIL [Concomitant]
     Active Substance: FISH OIL
  5. ROSUVASTATIN TAB 40MG [Suspect]
     Active Substance: ROSUVASTATIN
     Indication: BLOOD CHOLESTEROL INCREASED
     Dosage: ONE TABLET DAILY AT BEDTIME MOUTH
     Route: 048
     Dates: start: 20170803, end: 20170808
  6. VITAMIN D3 [Concomitant]
     Active Substance: CHOLECALCIFEROL
  7. ZETIA [Concomitant]
     Active Substance: EZETIMIBE
  8. CITRACAL CALCIUM [Concomitant]

REACTIONS (2)
  - Arthralgia [None]
  - Middle insomnia [None]
